FAERS Safety Report 18157717 (Version 4)
Quarter: 2021Q3

REPORT INFORMATION
  Report Type: Spontaneous
  Country: US (occurrence: US)
  Receive Date: 20200817
  Receipt Date: 20210909
  Transmission Date: 20211014
  Serious: Yes (Hospitalization, Other)
  Sender: FDA-Public Use
  Company Number: US-GILEAD-2020-0489620

PATIENT
  Age: 34 Year
  Sex: Female
  Weight: 86.17 kg

DRUGS (107)
  1. TRUVADA [Suspect]
     Active Substance: EMTRICITABINE\TENOFOVIR DISOPROXIL FUMARATE
     Dosage: UNK
     Route: 048
     Dates: start: 20180627, end: 20180827
  2. BUPRENORPHINE/NALOXONE [Concomitant]
     Active Substance: BUPRENORPHINE\NALOXONE
  3. KLONOPIN [Concomitant]
     Active Substance: CLONAZEPAM
  4. LIBRIUM [Concomitant]
     Active Substance: CHLORDIAZEPOXIDE HYDROCHLORIDE
  5. CYMBALTA [Concomitant]
     Active Substance: DULOXETINE HYDROCHLORIDE
  6. SENNOSIDES. [Concomitant]
     Active Substance: SENNOSIDES
  7. HYDRALAZINE [Concomitant]
     Active Substance: HYDRALAZINE HYDROCHLORIDE
  8. LINEZOLID. [Concomitant]
     Active Substance: LINEZOLID
  9. SEROQUEL [Concomitant]
     Active Substance: QUETIAPINE FUMARATE
  10. METOCLOPRAMIDE. [Concomitant]
     Active Substance: METOCLOPRAMIDE
  11. TRUVADA [Suspect]
     Active Substance: EMTRICITABINE\TENOFOVIR DISOPROXIL FUMARATE
     Dosage: UNK
     Route: 048
     Dates: start: 20171212, end: 20180827
  12. TRUVADA [Suspect]
     Active Substance: EMTRICITABINE\TENOFOVIR DISOPROXIL FUMARATE
     Dosage: UNK
     Route: 048
     Dates: start: 201106, end: 201112
  13. CELEBREX [Concomitant]
     Active Substance: CELECOXIB
  14. BISACODYL. [Concomitant]
     Active Substance: BISACODYL
  15. LIBRIUM [Concomitant]
     Active Substance: CHLORDIAZEPOXIDE HYDROCHLORIDE
  16. AZITHROMYCIN ANHYDROUS. [Concomitant]
     Active Substance: AZITHROMYCIN ANHYDROUS
  17. DIFLUCAN [Concomitant]
     Active Substance: FLUCONAZOLE
  18. CARAFATE [Concomitant]
     Active Substance: SUCRALFATE
  19. PEPCID AC [Concomitant]
     Active Substance: FAMOTIDINE
  20. NYSTATIN. [Concomitant]
     Active Substance: NYSTATIN
  21. NORVIR [Concomitant]
     Active Substance: RITONAVIR
  22. LORAZEPAM. [Concomitant]
     Active Substance: LORAZEPAM
  23. GABAPENTIN. [Concomitant]
     Active Substance: GABAPENTIN
  24. METRONIDAZOLE. [Concomitant]
     Active Substance: METRONIDAZOLE
  25. OXYCODONE HYDROCHLORIDE. [Concomitant]
     Active Substance: OXYCODONE HYDROCHLORIDE
  26. LORTAB [LORATADINE] [Concomitant]
     Active Substance: LORATADINE
  27. AMBIEN [Concomitant]
     Active Substance: ZOLPIDEM TARTRATE
  28. BUPRENORPHINE. [Concomitant]
     Active Substance: BUPRENORPHINE
  29. CLONIDINE. [Concomitant]
     Active Substance: CLONIDINE
  30. FERROUS SULFATE. [Concomitant]
     Active Substance: FERROUS SULFATE
  31. FOSAMAX [Concomitant]
     Active Substance: ALENDRONATE SODIUM
  32. REMERON [Concomitant]
     Active Substance: MIRTAZAPINE
  33. ASPIRIN [ACETYLSALICYLIC ACID] [Concomitant]
     Active Substance: ASPIRIN
  34. MECLIZINE HCL [Concomitant]
     Active Substance: MECLIZINE HYDROCHLORIDE
  35. CEFAZOLIN [Concomitant]
     Active Substance: CEFAZOLIN
  36. DEXTROSE. [Concomitant]
     Active Substance: DEXTROSE
  37. ONDANSETRON [Concomitant]
     Active Substance: ONDANSETRON
  38. LEVOFLOXACIN. [Concomitant]
     Active Substance: LEVOFLOXACIN
  39. TETRACYCLINE [Concomitant]
     Active Substance: TETRACYCLINE
  40. LIDOCAINE. [Concomitant]
     Active Substance: LIDOCAINE
  41. VIREAD [Suspect]
     Active Substance: TENOFOVIR DISOPROXIL FUMARATE
     Indication: HIV INFECTION
     Dosage: UNK
     Route: 048
     Dates: start: 20120113, end: 20120625
  42. TRUVADA [Suspect]
     Active Substance: EMTRICITABINE\TENOFOVIR DISOPROXIL FUMARATE
     Dosage: UNK
     Route: 048
     Dates: start: 201106, end: 20180827
  43. VANCOMYCIN [Concomitant]
     Active Substance: VANCOMYCIN
  44. HYDROXYZINE PAMOATE. [Concomitant]
     Active Substance: HYDROXYZINE PAMOATE
  45. PERCOCET [Concomitant]
     Active Substance: ACETAMINOPHEN\OXYCODONE HYDROCHLORIDE
  46. PRISTIQ EXTENDED?RELEASE [Concomitant]
     Active Substance: DESVENLAFAXINE SUCCINATE
  47. LORTAB ASA [Concomitant]
     Active Substance: ASPIRIN\HYDROCODONE BITARTRATE
  48. ROBAXIN [Concomitant]
     Active Substance: METHOCARBAMOL
  49. PANTOPRAZOLE [Concomitant]
     Active Substance: PANTOPRAZOLE
  50. CEFTRIAXONE. [Concomitant]
     Active Substance: CEFTRIAXONE
  51. NEURONTIN [Concomitant]
     Active Substance: GABAPENTIN
  52. THIAMINE. [Concomitant]
     Active Substance: THIAMINE
  53. FLEXERIL [CEFIXIME] [Concomitant]
     Active Substance: CEFIXIME
  54. METHOCARBAMOL. [Concomitant]
     Active Substance: METHOCARBAMOL
  55. ASPIRIN (E.C.) [Concomitant]
     Active Substance: ASPIRIN
  56. DULOXETINE. [Concomitant]
     Active Substance: DULOXETINE
  57. XANAX [Concomitant]
     Active Substance: ALPRAZOLAM
  58. ZYPREXA [Concomitant]
     Active Substance: OLANZAPINE
  59. HYDROXYZINE [Concomitant]
     Active Substance: HYDROXYZINE HYDROCHLORIDE
  60. BACTRIM [Concomitant]
     Active Substance: SULFAMETHOXAZOLE\TRIMETHOPRIM
  61. MELATONIN [Concomitant]
     Active Substance: MELATONIN
  62. CLINDAMYCIN. [Concomitant]
     Active Substance: CLINDAMYCIN
  63. NAPROSYN E [Concomitant]
     Active Substance: NAPROXEN
  64. MINOCYCLINE [Concomitant]
     Active Substance: MINOCYCLINE HYDROCHLORIDE
  65. VIREAD [Suspect]
     Active Substance: TENOFOVIR DISOPROXIL FUMARATE
     Dosage: UNK
     Route: 048
     Dates: start: 20120113, end: 20120323
  66. TRUVADA [Suspect]
     Active Substance: EMTRICITABINE\TENOFOVIR DISOPROXIL FUMARATE
     Dosage: UNK
     Route: 048
     Dates: start: 20161107, end: 20171112
  67. DESCOVY [Concomitant]
     Active Substance: EMTRICITABINE\TENOFOVIR ALAFENAMIDE FUMARATE
  68. DEPO?PROVERA [Concomitant]
     Active Substance: MEDROXYPROGESTERONE ACETATE
  69. OXYCODONE [Concomitant]
     Active Substance: OXYCODONE
  70. MYTESI [Concomitant]
     Active Substance: CROFELEMER
  71. LOVENOX HP [Concomitant]
     Active Substance: ENOXAPARIN SODIUM
  72. HYDROMORPHONE [Concomitant]
     Active Substance: HYDROMORPHONE
  73. MEGACE [Concomitant]
     Active Substance: MEGESTROL ACETATE
  74. FENTANYL. [Concomitant]
     Active Substance: FENTANYL
  75. PROTONIX [OMEPRAZOLE] [Concomitant]
     Active Substance: OMEPRAZOLE
  76. TRUVADA [Suspect]
     Active Substance: EMTRICITABINE\TENOFOVIR DISOPROXIL FUMARATE
     Indication: HIV INFECTION
     Dosage: UNK
     Route: 048
     Dates: start: 201203, end: 201610
  77. RITONAVIR. [Concomitant]
     Active Substance: RITONAVIR
  78. BUSPAR [Concomitant]
     Active Substance: BUSPIRONE HYDROCHLORIDE
  79. ECOTRIN [Concomitant]
     Active Substance: ASPIRIN
  80. TRAZODONE [Concomitant]
     Active Substance: TRAZODONE HYDROCHLORIDE
  81. VISTARIL [Concomitant]
     Active Substance: HYDROXYZINE PAMOATE
  82. CELEXA [CELECOXIB] [Concomitant]
     Active Substance: CELECOXIB
  83. EMTRIVA [Concomitant]
     Active Substance: EMTRICITABINE
  84. AUGMENTIN [Concomitant]
     Active Substance: AMOXICILLIN\CLAVULANATE POTASSIUM
  85. MAGNESIUM SULFATE. [Concomitant]
     Active Substance: MAGNESIUM SULFATE
  86. MIDAZOLAM APL [Concomitant]
  87. CHOLECALCIFEROL [Concomitant]
     Active Substance: CHOLECALCIFEROL
  88. CLONAZEPAM. [Concomitant]
     Active Substance: CLONAZEPAM
  89. LYRICA [Concomitant]
     Active Substance: PREGABALIN
  90. ERYTHROMYCIN. [Concomitant]
     Active Substance: ERYTHROMYCIN
  91. HALOPERIDOL. [Concomitant]
     Active Substance: HALOPERIDOL
  92. VITAMIN C ACID [Concomitant]
     Active Substance: ASCORBIC ACID
  93. TEGRETOL [Concomitant]
     Active Substance: CARBAMAZEPINE
  94. KEFLEX [Concomitant]
     Active Substance: CEPHALEXIN
  95. NAPROXEN. [Concomitant]
     Active Substance: NAPROXEN
  96. TRUVADA [Suspect]
     Active Substance: EMTRICITABINE\TENOFOVIR DISOPROXIL FUMARATE
     Dosage: UNK
     Route: 048
     Dates: start: 2006, end: 201112
  97. PREZCOBIX [Concomitant]
     Active Substance: COBICISTAT\DARUNAVIR ETHANOLATE
  98. PREZISTA [Concomitant]
     Active Substance: DARUNAVIR ETHANOLATE
  99. TRAMADOL. [Concomitant]
     Active Substance: TRAMADOL
  100. COLACE [Concomitant]
     Active Substance: DOCUSATE SODIUM
  101. IBUPROFEN. [Concomitant]
     Active Substance: IBUPROFEN
  102. TEMAZEPAM. [Concomitant]
     Active Substance: TEMAZEPAM
  103. METOPROLOL. [Concomitant]
     Active Substance: METOPROLOL
  104. ABILIFY [Concomitant]
     Active Substance: ARIPIPRAZOLE
  105. MAALOX ADVANCED [ALUMINIUM HYDROXIDE;MAGNESIUM HYDROXIDE;SIMETICONE] [Concomitant]
  106. LODINE [Concomitant]
     Active Substance: ETODOLAC
  107. DIPHENHYDRAMINE. [Concomitant]
     Active Substance: DIPHENHYDRAMINE

REACTIONS (19)
  - Pain [Not Recovered/Not Resolved]
  - Osteoarthritis [Unknown]
  - Skeletal injury [Unknown]
  - Gait disturbance [Not Recovered/Not Resolved]
  - Depression [Unknown]
  - Emotional distress [Unknown]
  - Fractured sacrum [Unknown]
  - Bone density decreased [Unknown]
  - Joint dislocation [Unknown]
  - Road traffic accident [Unknown]
  - Joint injury [Unknown]
  - Fracture [Not Recovered/Not Resolved]
  - Osteoporosis [Not Recovered/Not Resolved]
  - Arthralgia [Unknown]
  - Nephropathy [Unknown]
  - Spinal fracture [Not Recovered/Not Resolved]
  - Hip fracture [Not Recovered/Not Resolved]
  - Anxiety [Unknown]
  - Renal impairment [Not Recovered/Not Resolved]

NARRATIVE: CASE EVENT DATE: 2006
